FAERS Safety Report 17272314 (Version 3)
Quarter: 2020Q3

REPORT INFORMATION
  Report Type: Report from Study
  Country: JP (occurrence: JP)
  Receive Date: 20200115
  Receipt Date: 20200720
  Transmission Date: 20201102
  Serious: Yes (Death)
  Sender: FDA-Public Use
  Company Number: JP-IPSEN BIOPHARMACEUTICALS, INC.-2019-14281

PATIENT
  Age: 62 Year
  Sex: Male

DRUGS (7)
  1. MECOBALAMIN [Concomitant]
     Active Substance: METHYLCOBALAMIN
     Indication: NEUROPATHY PERIPHERAL
  2. TEPRENONE [Concomitant]
     Active Substance: TEPRENONE
     Indication: GASTRITIS PROPHYLAXIS
     Dates: start: 20180812, end: 20180819
  3. SOMATULINE [Suspect]
     Active Substance: LANREOTIDE ACETATE
     Indication: GASTROENTEROPANCREATIC NEUROENDOCRINE TUMOUR DISEASE
     Route: 058
     Dates: start: 20180522, end: 20190521
  4. URINORM [Concomitant]
     Active Substance: BENZBROMARONE
     Indication: GOUT
     Dates: end: 20190320
  5. REBAMIPIDE [Concomitant]
     Active Substance: REBAMIPIDE
     Indication: GASTRITIS PROPHYLAXIS
     Dates: start: 20181211
  6. MAGNESIUM OXIDE. [Concomitant]
     Active Substance: MAGNESIUM OXIDE
     Indication: CONSTIPATION
  7. OLMETEC [Concomitant]
     Active Substance: OLMESARTAN MEDOXOMIL
     Indication: HYPERTENSION

REACTIONS (8)
  - Hypertension [Not Recovered/Not Resolved]
  - Post procedural fever [Recovered/Resolved]
  - Constipation [Not Recovered/Not Resolved]
  - Post procedural fever [Recovered/Resolved]
  - Peptic ulcer [Recovering/Resolving]
  - Gastroenteropancreatic neuroendocrine tumour disease [Fatal]
  - Spinal osteoarthritis [Not Recovered/Not Resolved]
  - Gout [Not Recovered/Not Resolved]

NARRATIVE: CASE EVENT DATE: 20180809
